FAERS Safety Report 5154859-3 (Version None)
Quarter: 2006Q4

REPORT INFORMATION
  Report Type: 
  Country: None (occurrence: None)
  Receive Date: 20061121
  Receipt Date: 20061002
  Transmission Date: 20070319
  Serious: Yes (Other)
  Sender: FDA-Public Use
  Company Number: PHFR2006GB02948

PATIENT
  Age: 22 Year
  Sex: Female

DRUGS (1)
  1. TEGRETOL [Suspect]
     Dosage: 100MG TO 200MG DAILY
     Route: 065

REACTIONS (2)
  - BONE SCAN ABNORMAL [None]
  - OSTEOPOROSIS [None]
